FAERS Safety Report 25884417 (Version 2)
Quarter: 2025Q4

REPORT INFORMATION
  Report Type: Spontaneous
  Country: US (occurrence: US)
  Receive Date: 20251006
  Receipt Date: 20251009
  Transmission Date: 20260118
  Serious: Yes (Life-Threatening, Hospitalization, Other)
  Sender: PFIZER
  Company Number: US-PFIZER INC-PV202500117809

PATIENT
  Age: 60 Year
  Sex: Female

DRUGS (4)
  1. AZTREONAM [Suspect]
     Active Substance: AZTREONAM
     Indication: Haematological infection
     Dosage: 2 G, 3X/DAY, EVERY 8 HOURS
     Route: 042
  2. AZTREONAM [Suspect]
     Active Substance: AZTREONAM
     Indication: Pneumonia
  3. AVIBACTAM SODIUM\CEFTAZIDIME [Suspect]
     Active Substance: AVIBACTAM SODIUM\CEFTAZIDIME
     Indication: Haematological infection
     Dosage: 2.5 G, OVER 2 HOURS EVERY 8 HOURS
     Route: 042
  4. AVIBACTAM SODIUM\CEFTAZIDIME [Suspect]
     Active Substance: AVIBACTAM SODIUM\CEFTAZIDIME
     Indication: Pneumonia

REACTIONS (1)
  - Drug ineffective [Unknown]
